FAERS Safety Report 21670373 (Version 2)
Quarter: 2022Q4

REPORT INFORMATION
  Report Type: Spontaneous
  Country: PT (occurrence: PT)
  Receive Date: 20221201
  Receipt Date: 20221228
  Transmission Date: 20230113
  Serious: Yes (Hospitalization)
  Sender: FDA-Public Use
  Company Number: PT-TEVA-2022-PT-2830951

PATIENT
  Age: 61 Year
  Sex: Female

DRUGS (1)
  1. HYDROCHLOROTHIAZIDE\OLMESARTAN MEDOXOMIL [Suspect]
     Active Substance: HYDROCHLOROTHIAZIDE\OLMESARTAN MEDOXOMIL
     Indication: Hypertension
     Dosage: OLMESARTAN MEDOXOMIL 20 MG/HYDROCHLOROTHIAZIDE 25 MG
     Route: 065

REACTIONS (1)
  - Gastrointestinal disorder [Recovered/Resolved]
